FAERS Safety Report 6208216-9 (Version None)
Quarter: 2009Q2

REPORT INFORMATION
  Report Type: 
  Country: None (occurrence: None)
  Receive Date: 20090529
  Receipt Date: 20090522
  Transmission Date: 20091009
  Serious: Yes (Other)
  Sender: FDA-Public Use
  Company Number: CA-BRISTOL-MYERS SQUIBB COMPANY-14574065

PATIENT
  Age: 14 Month
  Sex: Male

DRUGS (4)
  1. CEFZIL [Suspect]
     Indication: PNEUMONIA
     Dosage: CEFZIL 250 MG/5ML
     Route: 048
     Dates: start: 20090307, end: 20090315
  2. CEFZIL [Suspect]
     Indication: EAR INFECTION
     Dosage: CEFZIL 250 MG/5ML
     Route: 048
     Dates: start: 20090307, end: 20090315
  3. CEFTRIAXONE [Suspect]
     Route: 042
     Dates: start: 20090301
  4. FER-IN-SOL [Concomitant]
     Dosage: FOR 3 MONTHS
     Dates: start: 20090307

REACTIONS (1)
  - BURNS SECOND DEGREE [None]
